FAERS Safety Report 22609872 (Version 1)
Quarter: 2023Q2

REPORT INFORMATION
  Report Type: Spontaneous
  Country: GB (occurrence: GB)
  Receive Date: 20230616
  Receipt Date: 20230616
  Transmission Date: 20230721
  Serious: Yes (Congenital Anomaly)
  Sender: FDA-Public Use
  Company Number: GB-MHRA-MED-202306010953126740-PGBJL

PATIENT
  Sex: Female
  Weight: 57 kg

DRUGS (1)
  1. ISOTRETINOIN [Suspect]
     Active Substance: ISOTRETINOIN
     Indication: Acne
     Dosage: 20 MG ONCE DAILY; CAPSULE
     Route: 065
     Dates: start: 20230507, end: 20230531

REACTIONS (2)
  - Medication error [Unknown]
  - Unintended pregnancy [Recovering/Resolving]
